FAERS Safety Report 5633714-6 (Version None)
Quarter: 2008Q1

REPORT INFORMATION
  Report Type: 
  Country: None (occurrence: None)
  Receive Date: 20080221
  Receipt Date: 20080211
  Transmission Date: 20080703
  Serious: Yes (Other)
  Sender: FDA-Public Use
  Company Number: US-ABBOTT-08P-163-0437739-00

PATIENT
  Sex: Male
  Weight: 99.426 kg

DRUGS (3)
  1. SYNTHROID [Suspect]
     Indication: HYPOTHYROIDISM
     Route: 048
     Dates: start: 20071001, end: 20080130
  2. SYNTHROID [Suspect]
     Route: 048
     Dates: start: 20080131, end: 20080202
  3. SYNTHROID [Suspect]
     Route: 048
     Dates: start: 20080207, end: 20080207

REACTIONS (6)
  - ANXIETY [None]
  - FEELING JITTERY [None]
  - GRAND MAL CONVULSION [None]
  - RESPIRATORY DISTRESS [None]
  - TREMOR [None]
  - UNDERDOSE [None]
